FAERS Safety Report 7998304-9 (Version None)
Quarter: 2011Q4

REPORT INFORMATION
  Report Type: 
  Country: None (occurrence: None)
  Receive Date: 20111221
  Receipt Date: 20110628
  Transmission Date: 20120403
  Serious: No
  Sender: FDA-Public Use
  Company Number: US-GLAXOSMITHKLINE-A0933448A

PATIENT
  Sex: Female

DRUGS (10)
  1. SYNTHROID [Concomitant]
  2. LOVAZA [Suspect]
     Indication: BLOOD TRIGLYCERIDES INCREASED
     Route: 048
     Dates: start: 20110607
  3. WELCHOL [Concomitant]
  4. CRESTOR [Concomitant]
  5. PROTONIX [Concomitant]
  6. PLAVIX [Concomitant]
  7. XANAX [Concomitant]
  8. TOPROL-XL [Concomitant]
  9. FLEXERIL [Concomitant]
  10. UNKNOWN MEDICATION [Concomitant]

REACTIONS (1)
  - DYSGEUSIA [None]
